FAERS Safety Report 9874744 (Version 5)
Quarter: 2014Q3

REPORT INFORMATION
  Report Type: Report from Study
  Country: US (occurrence: US)
  Receive Date: 20140206
  Receipt Date: 20140908
  Transmission Date: 20150326
  Serious: Yes (Other)
  Sender: FDA-Public Use
  Company Number: PHEH2013US021080

PATIENT
  Sex: Female

DRUGS (11)
  1. DIOVAN [Suspect]
     Active Substance: VALSARTAN
     Dosage: 160 MG, IN THE MORNING AND AT NIGHT
  2. COREG [Suspect]
     Active Substance: CARVEDILOL
     Dosage: 3 MG, QD
  3. DIOVAN [Suspect]
     Active Substance: VALSARTAN
     Dosage: 160 MG, QD
  4. LASIX [Concomitant]
     Active Substance: FUROSEMIDE
     Dosage: UNK UKN, UNK
  5. NORVASC [Suspect]
     Active Substance: AMLODIPINE BESYLATE
     Dosage: UNK UKN, AT NIGHT, QD
  6. VITAMIN D [Concomitant]
     Active Substance: CHOLECALCIFEROL
     Dosage: UNK UKN, UNK
  7. MINERALS NOS W/VITAMINS NOS [Concomitant]
     Dosage: UNK UKN, UNK
  8. DIOVAN [Suspect]
     Active Substance: VALSARTAN
     Dosage: 160 MG, BID
  9. DIOVAN [Suspect]
     Active Substance: VALSARTAN
     Dosage: 160 MG, UNK
     Route: 048
  10. COREG [Suspect]
     Active Substance: CARVEDILOL
     Dosage: 3.6 MG, BID
  11. ASPIRIN LOW DOSE [Concomitant]
     Active Substance: ASPIRIN
     Dosage: UNK UKN, UNK

REACTIONS (13)
  - Dyspnoea [Unknown]
  - Malaise [Unknown]
  - Chills [Unknown]
  - Hernia [Unknown]
  - Sjogren^s syndrome [Unknown]
  - Fatigue [Unknown]
  - Abdominal pain [Unknown]
  - Cyanosis [Unknown]
  - Blood pressure fluctuation [Unknown]
  - Cardiac failure chronic [Unknown]
  - Oedema peripheral [Unknown]
  - Blood pressure increased [Unknown]
  - Dizziness [Unknown]
